FAERS Safety Report 23090025 (Version 1)
Quarter: 2023Q4

REPORT INFORMATION
  Report Type: Spontaneous
  Country: CN (occurrence: CN)
  Receive Date: 20231020
  Receipt Date: 20231020
  Transmission Date: 20240109
  Serious: Yes (Life-Threatening, Other)
  Sender: FDA-Public Use
  Company Number: CN-PFIZER INC-PV202300169092

PATIENT
  Age: 17 Year
  Sex: Male

DRUGS (7)
  1. METHYLPREDNISOLONE SODIUM SUCCINATE [Suspect]
     Active Substance: METHYLPREDNISOLONE SODIUM SUCCINATE
     Indication: Toxicity to various agents
     Dosage: UNK
     Route: 042
  2. GLUTATHIONE [Suspect]
     Active Substance: GLUTATHIONE
     Indication: Toxicity to various agents
     Dosage: UNK
     Route: 042
  3. VITAMIN C [Suspect]
     Active Substance: ASCORBIC ACID
     Indication: Toxicity to various agents
     Dosage: UNK
     Route: 042
  4. FUROSEMIDE [Suspect]
     Active Substance: FUROSEMIDE
     Indication: Polyuria
     Dosage: UNK
  5. FUROSEMIDE [Suspect]
     Active Substance: FUROSEMIDE
     Indication: Toxicity to various agents
  6. MONTMORILLONITE [Suspect]
     Active Substance: MONTMORILLONITE
     Indication: Toxicity to various agents
     Dosage: POWDER ADSORPTION
  7. GLYCERIN [Suspect]
     Active Substance: GLYCERIN
     Indication: Toxicity to various agents
     Dosage: CATHARSIS

REACTIONS (2)
  - Drug ineffective for unapproved indication [Unknown]
  - Off label use [Unknown]
